FAERS Safety Report 22250473 (Version 1)
Quarter: 2023Q2

REPORT INFORMATION
  Report Type: Spontaneous
  Country: TR (occurrence: TR)
  Receive Date: 20230425
  Receipt Date: 20230425
  Transmission Date: 20230721
  Serious: Yes (Life-Threatening)
  Sender: FDA-Public Use
  Company Number: TR-BAYER-2023A054854

PATIENT
  Age: 42 Year
  Sex: Female

DRUGS (2)
  1. MIRENA [Suspect]
     Active Substance: LEVONORGESTREL
     Indication: Dyspareunia
     Dosage: 20?G/DAY
     Route: 015
     Dates: start: 20210928
  2. MIRENA [Suspect]
     Active Substance: LEVONORGESTREL
     Indication: Dysmenorrhoea

REACTIONS (4)
  - Invasive lobular breast carcinoma [Recovered/Resolved]
  - Off label use of device [None]
  - Device use issue [None]
  - Drug effective for unapproved indication [None]

NARRATIVE: CASE EVENT DATE: 20210928
